FAERS Safety Report 4999408-5 (Version None)
Quarter: 2006Q2

REPORT INFORMATION
  Report Type: 
  Country: None (occurrence: None)
  Receive Date: 20060511
  Receipt Date: 20060503
  Transmission Date: 20061013
  Serious: Yes (Hospitalization)
  Sender: FDA-Public Use
  Company Number: FR-ROCHE-446876

PATIENT
  Age: 65 Year
  Sex: Female
  Weight: 68 kg

DRUGS (6)
  1. LARIAM [Suspect]
     Dosage: 1 DOSE WEEKLY.
     Route: 048
     Dates: start: 20041104, end: 20041109
  2. NEORAL [Concomitant]
     Indication: PROPHYLAXIS AGAINST TRANSPLANT REJECTION
     Route: 048
     Dates: start: 20031216
  3. MOPRAL [Concomitant]
     Indication: OESOPHAGITIS
     Dosage: ONE DOSE DAILY.
     Route: 048
  4. SOLUPRED [Concomitant]
     Dosage: 3 DOSES DAILY.
     Route: 048
  5. RENITEC [Concomitant]
     Indication: ESSENTIAL HYPERTENSION
     Route: 048
  6. LASILIX [Concomitant]
     Indication: ESSENTIAL HYPERTENSION
     Route: 048

REACTIONS (2)
  - DIALYSIS [None]
  - RENAL FAILURE ACUTE [None]
